FAERS Safety Report 8022408-8 (Version None)
Quarter: 2012Q1

REPORT INFORMATION
  Report Type: 
  Country: None (occurrence: None)
  Receive Date: 20120104
  Receipt Date: 20111227
  Transmission Date: 20120608
  Serious: Yes (Congenital Anomaly)
  Sender: FDA-Public Use
  Company Number: CA-SANOFI-AVENTIS-2011SA085293

PATIENT
  Age: 4 Week
  Sex: Female

DRUGS (2)
  1. METHOTREXATE [Suspect]
     Route: 064
  2. HYDROXYCHLOROQUINE SULFATE [Suspect]
     Route: 064

REACTIONS (5)
  - ANTERIOR CHAMBER CLEAVAGE SYNDROME [None]
  - FOETAL EXPOSURE DURING PREGNANCY [None]
  - EYE DISORDER [None]
  - CORNEAL OPACITY [None]
  - APHAKIA [None]
